FAERS Safety Report 16123971 (Version 2)
Quarter: 2019Q2

REPORT INFORMATION
  Report Type: Spontaneous
  Country: JP (occurrence: JP)
  Receive Date: 20190327
  Receipt Date: 20190422
  Transmission Date: 20190711
  Serious: Yes (Hospitalization)
  Sender: FDA-Public Use
  Company Number: JP-MYLANLABS-2019M1007345

PATIENT
  Age: 71 Year
  Sex: Female
  Weight: 51 kg

DRUGS (10)
  1. CARBOPLATIN INJ. 150MG ^NK^ [Suspect]
     Active Substance: CARBOPLATIN
     Indication: OVARIAN CANCER RECURRENT
     Dosage: 325 MILLIGRAM, QD
     Route: 041
     Dates: start: 20181122, end: 20181220
  2. DEXART [Concomitant]
     Active Substance: DEXAMETHASONE SODIUM PHOSPHATE
     Indication: ALLERGY PROPHYLAXIS
     Dosage: 9.9 MILLIGRAM, QD
     Route: 041
     Dates: start: 20181122, end: 20181220
  3. ROSUVASTATIN. [Concomitant]
     Active Substance: ROSUVASTATIN
     Indication: HYPERCHOLESTEROLAEMIA
     Dosage: 5 MILLIGRAM, QD
     Route: 048
  4. PACLITAXEL. [Concomitant]
     Active Substance: PACLITAXEL
     Indication: OVARIAN CANCER RECURRENT
     Dosage: 250 MILLIGRAM, QD
     Route: 041
     Dates: start: 20181122, end: 20181220
  5. EMEND [Concomitant]
     Active Substance: APREPITANT
     Indication: PROPHYLAXIS OF NAUSEA AND VOMITING
     Dosage: 125 MILLIGRAM, QD
     Route: 048
     Dates: end: 20181220
  6. YOKUKANSAN [Concomitant]
     Active Substance: HERBALS
     Indication: NEUROSIS
     Dosage: 2.5 MILLIGRAM, QD
     Route: 048
  7. MAGNESIUM OXIDE. [Concomitant]
     Active Substance: MAGNESIUM OXIDE
     Indication: PRODUCT USED FOR UNKNOWN INDICATION
     Route: 065
  8. GASTER                             /00082102/ [Concomitant]
     Indication: ALLERGY PROPHYLAXIS
     Dosage: 20 MILLIGRAM, QD
     Route: 041
     Dates: start: 20181122, end: 20181220
  9. ALOXI [Concomitant]
     Active Substance: PALONOSETRON HYDROCHLORIDE
     Indication: PROPHYLAXIS OF NAUSEA AND VOMITING
     Dosage: 0.75 MILLIGRAM, QD
     Route: 041
     Dates: start: 20181122, end: 20181220
  10. POLARAMINE [Concomitant]
     Active Substance: DEXCHLORPHENIRAMINE MALEATE
     Indication: ALLERGY PROPHYLAXIS
     Dosage: 5 MILLIGRAM, QD
     Route: 041
     Dates: end: 20181220

REACTIONS (1)
  - Anaphylactic shock [Recovered/Resolved]

NARRATIVE: CASE EVENT DATE: 20181220
